FAERS Safety Report 15986169 (Version 1)
Quarter: 2019Q1

REPORT INFORMATION
  Report Type: Spontaneous
  Country: US (occurrence: US)
  Receive Date: 20190220
  Receipt Date: 20190220
  Transmission Date: 20190418
  Serious: Yes (Other)
  Sender: FDA-Public Use
  Company Number: US-ASTRAZENECA-2019SE25584

PATIENT
  Age: 26902 Day
  Sex: Female
  Weight: 69.4 kg

DRUGS (10)
  1. FENOFIBRATE. [Concomitant]
     Active Substance: FENOFIBRATE
     Indication: BLOOD CHOLESTEROL DECREASED
  2. ZOLOFT [Concomitant]
     Active Substance: SERTRALINE HYDROCHLORIDE
  3. IBRANCE [Suspect]
     Active Substance: PALBOCICLIB
     Indication: METASTASES TO BONE MARROW
     Route: 048
  4. ALPRAZOLAM. [Concomitant]
     Active Substance: ALPRAZOLAM
     Indication: ANXIETY
  5. TAMOXIFEN [Suspect]
     Active Substance: TAMOXIFEN
     Indication: NEOPLASM MALIGNANT
     Route: 048
  6. IBRANCE [Suspect]
     Active Substance: PALBOCICLIB
     Indication: METASTASES TO BONE MARROW
     Route: 048
     Dates: start: 20181107
  7. LANSOPRAZOLE. [Concomitant]
     Active Substance: LANSOPRAZOLE
     Indication: DYSPEPSIA
  8. FASLODEX [Suspect]
     Active Substance: FULVESTRANT
     Route: 030
  9. BUPROPION HYDROCHLORIDE. [Concomitant]
     Active Substance: BUPROPION HYDROCHLORIDE
  10. LINACLOTIDE [Concomitant]
     Active Substance: LINACLOTIDE
     Indication: CONSTIPATION

REACTIONS (10)
  - Neoplasm malignant [Unknown]
  - Breast cancer metastatic [Unknown]
  - Neck pain [Unknown]
  - Rash [Unknown]
  - Fatigue [Unknown]
  - Arthritis [Unknown]
  - Hot flush [Unknown]
  - Metastases to bone marrow [Unknown]
  - Dyspepsia [Unknown]
  - White blood cell count abnormal [Recovered/Resolved]

NARRATIVE: CASE EVENT DATE: 20181129
